FAERS Safety Report 11161901 (Version 2)
Quarter: 2015Q2

REPORT INFORMATION
  Report Type: Spontaneous
  Country: US (occurrence: None)
  Receive Date: 20150602
  Receipt Date: 20150605
  Transmission Date: 20150821
  Serious: Yes (Death, Hospitalization)
  Sender: FDA-Public Use
  Company Number: 150199-1

PATIENT
  Age: 84 Year
  Sex: Male
  Weight: 54.43 kg

DRUGS (1)
  1. GOLYTELY [Suspect]
     Active Substance: POLYETHYLENE GLYCOL 3350\POTASSIUM CHLORIDE\SODIUM BICARBONATE\SODIUM CHLORIDE\SODIUM SULFATE ANHYDROUS
     Indication: COLONOSCOPY
     Dosage: {4L 2X PO
     Route: 048
     Dates: start: 20150406, end: 20150407

REACTIONS (7)
  - Dehydration [None]
  - Hospice care [None]
  - Vomiting [None]
  - General physical health deterioration [None]
  - Pneumonia [None]
  - Decreased appetite [None]
  - Weight decreased [None]

NARRATIVE: CASE EVENT DATE: 20150406
